APPROVED DRUG PRODUCT: VARENICLINE TARTRATE
Active Ingredient: VARENICLINE TARTRATE
Strength: EQ 1MG BASE
Dosage Form/Route: TABLET;ORAL
Application: A215931 | Product #002 | TE Code: AB
Applicant: DR REDDYS LABORATORIES LTD
Approved: Oct 1, 2024 | RLD: No | RS: No | Type: RX